FAERS Safety Report 26111576 (Version 1)
Quarter: 2025Q4

REPORT INFORMATION
  Report Type: Spontaneous
  Country: US (occurrence: US)
  Receive Date: 20251202
  Receipt Date: 20251202
  Transmission Date: 20260118
  Serious: Yes (Life-Threatening, Hospitalization, Other)
  Sender: CASPER PHARMA
  Company Number: US-CASPERPHARMA-US-2025RISLIT00601

PATIENT
  Age: 27 Year
  Sex: Female

DRUGS (1)
  1. GLYCOPYRROLATE [Suspect]
     Active Substance: GLYCOPYRROLATE
     Indication: Sinus bradycardia
     Route: 065

REACTIONS (11)
  - Cardiac arrest [Recovered/Resolved]
  - Cardiogenic shock [Recovered/Resolved]
  - Cardiac failure [Recovered/Resolved]
  - Stress cardiomyopathy [Recovered/Resolved]
  - Acute pulmonary oedema [Recovered/Resolved]
  - Tachycardia [Recovered/Resolved]
  - Hypokinesia [Recovered/Resolved]
  - Left ventricular dysfunction [Recovered/Resolved]
  - Mitral valve incompetence [Recovered/Resolved]
  - Ejection fraction decreased [Recovered/Resolved]
  - Product use in unapproved indication [Unknown]
